FAERS Safety Report 8159274-6 (Version None)
Quarter: 2012Q1

REPORT INFORMATION
  Report Type: 
  Country: None (occurrence: None)
  Receive Date: 20120217
  Receipt Date: 20120209
  Transmission Date: 20120608
  Serious: Yes (Life-Threatening, Hospitalization)
  Sender: FDA-Public Use
  Company Number: DSJ-2011-25769

PATIENT
  Age: 66 Year
  Sex: Male
  Weight: 68 kg

DRUGS (2)
  1. RINDERON (BETAMETHASONE) (PREPARATION FOR EXTERNAL USE (NOS)) (BETAMET [Concomitant]
  2. OFLOXACIN [Suspect]
     Indication: EXTERNAL EAR INFLAMMATION
     Dosage: (2 IN 1 D), AURICULAR
     Route: 001
     Dates: start: 20110917, end: 20110926

REACTIONS (15)
  - DIARRHOEA [None]
  - DECREASED APPETITE [None]
  - EYE MOVEMENT DISORDER [None]
  - HEPATIC FUNCTION ABNORMAL [None]
  - PRURITUS GENERALISED [None]
  - ABDOMINAL PAIN UPPER [None]
  - PYREXIA [None]
  - STEVENS-JOHNSON SYNDROME [None]
  - DERMATITIS ALLERGIC [None]
  - RASH GENERALISED [None]
  - CARDIAC FAILURE [None]
  - RENAL IMPAIRMENT [None]
  - RENAL FAILURE [None]
  - TOXICITY TO VARIOUS AGENTS [None]
  - ASPARTATE AMINOTRANSFERASE INCREASED [None]
